FAERS Safety Report 10166862 (Version 1)
Quarter: 2014Q2

REPORT INFORMATION
  Report Type: Spontaneous
  Country: GB (occurrence: None)
  Receive Date: 20140508
  Receipt Date: 20140508
  Transmission Date: 20141212
  Serious: Yes (Hospitalization)
  Sender: FDA-Public Use
  Company Number: AUR-APL-2014-05260

PATIENT
  Age: 74 Year
  Sex: Female

DRUGS (6)
  1. DONEPEZIL [Suspect]
     Indication: DEMENTIA ALZHEIMER^S TYPE
     Dosage: 10 MG (10 MG, 1 IN 1 D)
     Route: 048
     Dates: end: 20140420
  2. ASPIRIN [Concomitant]
  3. LISINOPRIL [Concomitant]
  4. PREGABALIN [Concomitant]
  5. SERTRALINE [Concomitant]
  6. SIMVASTATIN [Concomitant]

REACTIONS (2)
  - Bradycardia [None]
  - Circulatory collapse [None]
